FAERS Safety Report 18547844 (Version 2)
Quarter: 2023Q2

REPORT INFORMATION
  Report Type: Spontaneous
  Country: US (occurrence: US)
  Receive Date: 20201125
  Receipt Date: 20230529
  Transmission Date: 20230722
  Serious: Yes (Death, Hospitalization, Other)
  Sender: FDA-Public Use
  Company Number: US-PURDUE-USA-2020-0166641

PATIENT
  Age: 50 Year
  Sex: Male

DRUGS (10)
  1. OXYCONTIN [Suspect]
     Active Substance: OXYCODONE HYDROCHLORIDE
     Indication: Pain
     Dosage: 60 MILLIGRAM
     Route: 048
  2. OXYCODONE HYDROCHLORIDE [Suspect]
     Active Substance: OXYCODONE HYDROCHLORIDE
     Indication: Product used for unknown indication
     Dosage: UNK
     Route: 048
  3. HYDROCODONE BITARTRATE AND ACETAMINOPHEN [Suspect]
     Active Substance: ACETAMINOPHEN\HYDROCODONE BITARTRATE
     Indication: Product used for unknown indication
     Dosage: UNKNOWN
     Route: 048
  4. TRAMADOL [Suspect]
     Active Substance: TRAMADOL
     Indication: Product used for unknown indication
     Dosage: UNKNOWN
     Route: 048
  5. TORADOL [Suspect]
     Active Substance: KETOROLAC TROMETHAMINE
     Indication: Product used for unknown indication
     Dosage: UNKNOWN
     Route: 065
  6. XANAX [Suspect]
     Active Substance: ALPRAZOLAM
     Indication: Anxiety
     Dosage: UNKNOWN
     Route: 048
  7. LORCET [Suspect]
     Active Substance: ACETAMINOPHEN\HYDROCODONE BITARTRATE
     Indication: Product used for unknown indication
     Dosage: UNKNOWN
     Route: 065
  8. VIOXX [Suspect]
     Active Substance: ROFECOXIB
     Indication: Product used for unknown indication
     Dosage: UNKNOWN
     Route: 048
  9. COCAINE [Suspect]
     Active Substance: COCAINE
     Indication: Product used for unknown indication
     Dosage: UNKNOWN
     Route: 065
  10. CAFFEINE\CARISOPRODOL\PHENACETIN [Suspect]
     Active Substance: CAFFEINE\CARISOPRODOL\PHENACETIN
     Indication: Product used for unknown indication
     Dosage: UNKNOWN
     Route: 065

REACTIONS (14)
  - Cardio-respiratory arrest [Fatal]
  - Overdose [Fatal]
  - Developmental delay [Unknown]
  - Cardiac disorder [Unknown]
  - Coma [Unknown]
  - Brain injury [Unknown]
  - Liver injury [Unknown]
  - Drug dependence [Unknown]
  - Blood calcium abnormal [Unknown]
  - Chondropathy [Unknown]
  - Anger [Unknown]
  - Mental disorder [Unknown]
  - Dysarthria [Unknown]
  - Aggression [Unknown]

NARRATIVE: CASE EVENT DATE: 20060201
